FAERS Safety Report 16750536 (Version 1)
Quarter: 2019Q3

REPORT INFORMATION
  Report Type: Spontaneous
  Country: US (occurrence: US)
  Receive Date: 20190710
  Receipt Date: 20190710
  Transmission Date: 20191005
  Serious: Yes (Hospitalization)
  Sender: FDA-Public Use
  Company Number: None

PATIENT
  Age: 30 Year
  Sex: Female

DRUGS (4)
  1. HUMIRA [Suspect]
     Active Substance: ADALIMUMAB
     Indication: HIDRADENITIS
     Dosage: ?          OTHER DOSE:1 SYR;?
     Route: 058
     Dates: start: 20181004
  2. CLINDAMYCIN. [Concomitant]
     Active Substance: CLINDAMYCIN
  3. NF THYROID [Concomitant]
  4. HYDROCORT OIN [Concomitant]

REACTIONS (1)
  - Breast operation [None]

NARRATIVE: CASE EVENT DATE: 20190521
